FAERS Safety Report 4450653-7 (Version None)
Quarter: 2004Q3

REPORT INFORMATION
  Report Type: 
  Country: None (occurrence: None)
  Receive Date: 20040913
  Receipt Date: 20040608
  Transmission Date: 20050211
  Serious: No
  Sender: FDA-Public Use
  Company Number: 2004-BP-04479BP(0)

PATIENT
  Age: 47 Year
  Sex: Male

DRUGS (8)
  1. SPIRIVA [Suspect]
     Indication: CHRONIC OBSTRUCTIVE AIRWAYS DISEASE
     Dosage: 18 MCG (18 MCG), IH
     Route: 055
     Dates: start: 20040603
  2. ACCOLATE [Concomitant]
  3. PROTONIX [Concomitant]
  4. ZYRTEC [Concomitant]
  5. XANAX [Concomitant]
  6. REMERON [Concomitant]
  7. PROPECIA [Concomitant]
  8. OXYGEN (OXYGEN) [Concomitant]

REACTIONS (4)
  - ASTHENIA [None]
  - DYSPNOEA [None]
  - FEELING ABNORMAL [None]
  - TREMOR [None]
